FAERS Safety Report 14261437 (Version 1)
Quarter: 2017Q4

REPORT INFORMATION
  Report Type: Spontaneous
  Country: US (occurrence: US)
  Receive Date: 20171208
  Receipt Date: 20171208
  Transmission Date: 20180321
  Serious: No
  Sender: FDA-Public Use
  Company Number: US-APOTEX-2017AP005808

PATIENT
  Sex: Female

DRUGS (2)
  1. EXFORGE [Concomitant]
     Active Substance: AMLODIPINE BESYLATE\VALSARTAN
     Indication: HYPERTENSION
     Dosage: 1 DF, QD
     Route: 048
  2. OMEPRAZOLE. [Suspect]
     Active Substance: OMEPRAZOLE
     Indication: FLATULENCE
     Dosage: 1 DF, QD
     Route: 048
     Dates: start: 201610, end: 20170108

REACTIONS (4)
  - Headache [Unknown]
  - Pain in extremity [Unknown]
  - Neck pain [Unknown]
  - Myalgia [Unknown]

NARRATIVE: CASE EVENT DATE: 2016
